FAERS Safety Report 6071104-5 (Version None)
Quarter: 2009Q1

REPORT INFORMATION
  Report Type: 
  Country: None (occurrence: None)
  Receive Date: 20090209
  Receipt Date: 20090204
  Transmission Date: 20090719
  Serious: Yes (Death, Other)
  Sender: FDA-Public Use
  Company Number: JP-ABBOTT-06P-087-0336276-00

PATIENT
  Sex: Female

DRUGS (8)
  1. NORVIR [Suspect]
     Indication: HIV INFECTION
     Route: 048
     Dates: start: 20060109
  2. ABACAVIR [Suspect]
     Indication: HIV INFECTION
     Route: 048
     Dates: start: 20060109, end: 20060119
  3. ATAZANAVIR [Suspect]
     Indication: HIV INFECTION
     Route: 048
     Dates: start: 20060109
  4. TENOFOVIR [Suspect]
     Indication: HIV INFECTION
     Route: 048
     Dates: start: 20060120, end: 20070617
  5. LAMIVUDINE [Concomitant]
     Indication: HIV INFECTION
     Route: 048
     Dates: start: 20060109, end: 20060617
  6. EMTRICITABINE W/TENOFOVIR [Concomitant]
     Indication: HIV INFECTION
     Route: 048
     Dates: start: 20070618
  7. METHERGINE [Concomitant]
     Indication: UTERINE HYPERTONUS
     Dates: start: 20060502, end: 20060507
  8. CEFACLOR [Concomitant]
     Indication: INFECTION PROPHYLAXIS
     Dates: start: 20060502, end: 20060507

REACTIONS (4)
  - BLOOD BILIRUBIN INCREASED [None]
  - RASH [None]
  - SELECTIVE ABORTION [None]
  - WHITE BLOOD CELL COUNT DECREASED [None]
